FAERS Safety Report 6089555-1 (Version None)
Quarter: 2009Q1

REPORT INFORMATION
  Report Type: 
  Country: None (occurrence: None)
  Receive Date: 20090224
  Receipt Date: 20090218
  Transmission Date: 20090719
  Serious: Yes (Hospitalization)
  Sender: FDA-Public Use
  Company Number: GB-SANOFI-SYNTHELABO-F01200801502

PATIENT
  Sex: Male

DRUGS (10)
  1. ALLIUM SATIVUM [Concomitant]
     Indication: MEDICAL DIET
     Dosage: UNK
     Route: 048
     Dates: start: 20060904
  2. COD LIVER OIL [Concomitant]
     Indication: MEDICAL DIET
     Dosage: UNK
     Route: 048
     Dates: start: 20060901
  3. BISOPROLOL [Concomitant]
     Indication: HYPERTENSION
     Dosage: 5 MG
     Route: 048
     Dates: start: 20080630
  4. BENDROFLUMETHIAZIDE [Concomitant]
     Indication: HYPERTENSION
     Dosage: 2.5 MG
     Route: 048
     Dates: start: 20080301
  5. MOXONIDINE [Concomitant]
     Indication: HYPERTENSION
     Dosage: 2.5 MG
     Route: 048
     Dates: start: 20071201
  6. ACETAMINOPHEN [Concomitant]
     Indication: ANALGESIA
     Dosage: UNK
     Route: 048
     Dates: start: 20070426
  7. DOXAZOSIN MESYLATE [Concomitant]
     Indication: HYPERTENSION
     Dosage: 8 MG
     Route: 048
     Dates: start: 20070301
  8. PERINDOPRIL ERBUMINE [Concomitant]
     Indication: HYPERTENSION
     Dosage: 8 MG
     Route: 048
     Dates: start: 20050401
  9. ACETYLSALICYLIC ACID SRT [Concomitant]
     Indication: PROPHYLAXIS
     Dosage: 75 MG
     Dates: start: 19990901
  10. ELIGARD [Suspect]
     Indication: PROSTATE CANCER
     Dosage: 22.5 MG
     Route: 058
     Dates: start: 20080730, end: 20080730

REACTIONS (6)
  - CONFUSIONAL STATE [None]
  - DYSKINESIA [None]
  - HAEMATURIA [None]
  - HEADACHE [None]
  - SYNCOPE [None]
  - URINARY RETENTION [None]
